APPROVED DRUG PRODUCT: CILOSTAZOL
Active Ingredient: CILOSTAZOL
Strength: 50MG
Dosage Form/Route: TABLET;ORAL
Application: A077898 | Product #001
Applicant: PLIVA HRVATSKA DOO
Approved: Oct 29, 2007 | RLD: No | RS: No | Type: DISCN